FAERS Safety Report 9246051 (Version 1)
Quarter: 2013Q2

REPORT INFORMATION
  Report Type: Spontaneous
  Country: CA (occurrence: CA)
  Receive Date: 20130422
  Receipt Date: 20130422
  Transmission Date: 20140414
  Serious: Yes (Other)
  Sender: FDA-Public Use
  Company Number: CA-ELI_LILLY_AND_COMPANY-CA201210001879

PATIENT
  Age: 41 Year
  Sex: Female
  Weight: 68 kg

DRUGS (5)
  1. CYMBALTA [Suspect]
     Indication: FIBROMYALGIA
     Dosage: 30 MG, QD
     Route: 048
     Dates: start: 20120326, end: 20120327
  2. CALCIUM [Concomitant]
     Dosage: UNK, UNKNOWN
  3. LYRICA [Concomitant]
     Indication: FIBROMYALGIA
     Dosage: UNK, UNKNOWN
     Route: 048
  4. NEXIUM [Concomitant]
     Indication: GASTROOESOPHAGEAL REFLUX DISEASE
     Dosage: 40 MG, UNKNOWN
  5. TYLENOL EXTRA STRENGTH [Concomitant]
     Dosage: UNK, UNKNOWN

REACTIONS (5)
  - Jaundice [Recovering/Resolving]
  - Skin burning sensation [Recovering/Resolving]
  - Chills [Recovering/Resolving]
  - Feeling abnormal [Recovering/Resolving]
  - Insomnia [Recovering/Resolving]
